FAERS Safety Report 15349617 (Version 1)
Quarter: 2018Q3

REPORT INFORMATION
  Report Type: Report from Study
  Country: US (occurrence: US)
  Receive Date: 20180904
  Receipt Date: 20180904
  Transmission Date: 20181010
  Serious: Yes (Hospitalization)
  Sender: FDA-Public Use
  Company Number: US-EXELIXIS-CABO-18015455

PATIENT
  Sex: Female
  Weight: 78.5 kg

DRUGS (29)
  1. CABOMETYX [Suspect]
     Active Substance: CABOZANTINIB S-MALATE
     Indication: METASTATIC RENAL CELL CARCINOMA
     Dosage: 60 MG, QD
     Route: 048
     Dates: start: 201805, end: 201808
  2. FLUCONAZOLE. [Concomitant]
     Active Substance: FLUCONAZOLE
  3. SYNTHROID [Concomitant]
     Active Substance: LEVOTHYROXINE SODIUM
  4. MAALOX PLUS EXTRA STRENGTH [Concomitant]
     Indication: DYSPEPSIA
  5. AMLODIPINE [Concomitant]
     Active Substance: AMLODIPINE BESYLATE
  6. LISINOPRIL. [Concomitant]
     Active Substance: LISINOPRIL
  7. LIPITOR [Concomitant]
     Active Substance: ATORVASTATIN CALCIUM
  8. DIPHENHYDRAMINE. [Concomitant]
     Active Substance: DIPHENHYDRAMINE
  9. CABOMETYX [Suspect]
     Active Substance: CABOZANTINIB S-MALATE
     Dosage: 60 MG, QD
     Route: 048
     Dates: start: 201808
  10. NICODERM CQ [Concomitant]
     Active Substance: NICOTINE
  11. NORVASC [Concomitant]
     Active Substance: AMLODIPINE BESYLATE
  12. CATAPRES [Concomitant]
     Active Substance: CLONIDINE HYDROCHLORIDE
  13. ZESTRIL [Concomitant]
     Active Substance: LISINOPRIL
  14. PRILOSEC [Concomitant]
     Active Substance: OMEPRAZOLE MAGNESIUM
  15. NITROGLYCERINE [Concomitant]
     Active Substance: NITROGLYCERIN
     Indication: CHEST PAIN
  16. ATORVASTATIN [Concomitant]
     Active Substance: ATORVASTATIN
  17. THIOTHIXENE. [Concomitant]
     Active Substance: THIOTHIXENE
  18. PRINIVIL [Concomitant]
     Active Substance: LISINOPRIL
  19. PROTONIX [Concomitant]
     Active Substance: PANTOPRAZOLE SODIUM
  20. SENOKOT [Concomitant]
     Active Substance: SENNOSIDES
  21. VICTOZA [Concomitant]
     Active Substance: LIRAGLUTIDE
  22. GLUCAGON. [Concomitant]
     Active Substance: GLUCAGON
  23. ALBUTEROL. [Concomitant]
     Active Substance: ALBUTEROL
     Indication: RESPIRATORY DISTRESS
  24. LEVOTHROID [Concomitant]
     Active Substance: LEVOTHYROXINE SODIUM
  25. NEURONTIN [Concomitant]
     Active Substance: GABAPENTIN
  26. ELIQUIS [Concomitant]
     Active Substance: APIXABAN
  27. MAXZIDE [Concomitant]
     Active Substance: HYDROCHLOROTHIAZIDE\TRIAMTERENE
  28. CYCLOBENZAPRINE. [Concomitant]
     Active Substance: CYCLOBENZAPRINE
     Indication: MUSCLE SPASMS
  29. IPRATROPIUM [Concomitant]
     Active Substance: IPRATROPIUM
     Indication: RESPIRATORY DISTRESS

REACTIONS (10)
  - Metabolic encephalopathy [Unknown]
  - Constipation [Unknown]
  - Nausea [Unknown]
  - Vomiting [Unknown]
  - Decreased appetite [Unknown]
  - Hypoalbuminaemia [Unknown]
  - Oral discomfort [Unknown]
  - Asthenia [Unknown]
  - Anaemia [Unknown]
  - Hypertensive crisis [Recovering/Resolving]

NARRATIVE: CASE EVENT DATE: 2018
